FAERS Safety Report 6209151-2 (Version None)
Quarter: 2009Q2

REPORT INFORMATION
  Report Type: 
  Country: None (occurrence: None)
  Receive Date: 20090529
  Receipt Date: 20090518
  Transmission Date: 20091009
  Serious: Yes (Hospitalization)
  Sender: FDA-Public Use
  Company Number: NL-JNJFOC-20090407124

PATIENT
  Sex: Female
  Weight: 60 kg

DRUGS (11)
  1. REMICADE [Suspect]
     Dosage: RECEIVED 8 INFUSIONS TOTAL
     Route: 042
  2. REMICADE [Suspect]
     Route: 042
  3. REMICADE [Suspect]
     Route: 042
  4. REMICADE [Suspect]
     Route: 042
  5. REMICADE [Suspect]
     Route: 042
  6. REMICADE [Suspect]
     Route: 042
  7. REMICADE [Suspect]
     Route: 042
  8. REMICADE [Suspect]
     Indication: CROHN'S DISEASE
     Route: 042
  9. METHOTREXATE SODIUM [Concomitant]
     Indication: CROHN'S DISEASE
  10. CITALOPRAM HYDROBROMIDE [Concomitant]
     Indication: DEPRESSED MOOD
  11. FOLICUM [Concomitant]
     Indication: CROHN'S DISEASE

REACTIONS (1)
  - CROHN'S DISEASE [None]
